FAERS Safety Report 9671630 (Version 1)
Quarter: 2013Q4

REPORT INFORMATION
  Report Type: Spontaneous
  Country: GB (occurrence: None)
  Receive Date: 20131104
  Receipt Date: 20131104
  Transmission Date: 20140711
  Serious: Yes (Other)
  Sender: FDA-Public Use
  Company Number: 1988795

PATIENT
  Age: 39 Year
  Sex: Female
  Weight: 63.5 kg

DRUGS (6)
  1. MIDAZOLAM [Suspect]
     Indication: OOCYTE HARVEST
  2. MIDAZOLAM [Suspect]
     Indication: IN VITRO FERTILISATION
  3. PETHIDINE [Suspect]
     Indication: OOCYTE HARVEST
     Route: 051
  4. PETHIDINE [Suspect]
     Indication: IN VITRO FERTILISATION
     Route: 051
  5. BUDESONIDE W/ FORMOTEROL FURMARATE [Concomitant]
  6. ALL OTHER THERAPEUTIC DRUGS [Concomitant]

REACTIONS (4)
  - Injection site irritation [None]
  - Vein discolouration [None]
  - Drug ineffective [None]
  - Anaesthetic complication [None]
